FAERS Safety Report 15218812 (Version 2)
Quarter: 2018Q4

REPORT INFORMATION
  Report Type: Report from Study
  Country: AU (occurrence: AU)
  Receive Date: 20180731
  Receipt Date: 20180809
  Transmission Date: 20190204
  Serious: Yes (Hospitalization)
  Sender: FDA-Public Use
  Company Number: AU-ROCHE-2160638

PATIENT
  Age: 83 Year
  Sex: Female
  Weight: 65 kg

DRUGS (51)
  1. OBINUTUZUMAB. [Suspect]
     Active Substance: OBINUTUZUMAB
     Route: 042
     Dates: start: 20170309, end: 20170309
  2. BGB-3111 (BTK INHIBITOR) [Suspect]
     Active Substance: ZANUBRUTINIB
     Dosage: 80 MG NUMBER OF CAPSULES: 4
     Route: 065
     Dates: start: 20161117, end: 20161214
  3. BGB-3111 (BTK INHIBITOR) [Suspect]
     Active Substance: ZANUBRUTINIB
     Dosage: 80 MG NUMBER OF CAPSULES: 4
     Route: 065
     Dates: start: 20170209, end: 20170308
  4. BGB-3111 (BTK INHIBITOR) [Suspect]
     Active Substance: ZANUBRUTINIB
     Dosage: 80 MG NUMBER OF CAPSULES: 4
     Route: 065
     Dates: start: 20170406, end: 20170503
  5. BGB-3111 (BTK INHIBITOR) [Suspect]
     Active Substance: ZANUBRUTINIB
     Dosage: 80 MG NUMBER OF CAPSULES: 4
     Route: 065
     Dates: start: 20170827, end: 20170827
  6. BGB-3111 (BTK INHIBITOR) [Suspect]
     Active Substance: ZANUBRUTINIB
     Dosage: 80 MG NUMBER OF CAPSULES: 4
     Route: 065
     Dates: start: 20180529, end: 20180723
  7. ALEPAM [Concomitant]
     Active Substance: OXAZEPAM
     Route: 048
     Dates: start: 20170329, end: 20170430
  8. OBINUTUZUMAB. [Suspect]
     Active Substance: OBINUTUZUMAB
     Route: 042
     Dates: start: 20161022, end: 20161022
  9. BGB-3111 (BTK INHIBITOR) [Suspect]
     Active Substance: ZANUBRUTINIB
     Dosage: 80 MG NUMBER OF CAPSULES: 4
     Route: 065
     Dates: start: 20170822, end: 20170826
  10. BGB-3111 (BTK INHIBITOR) [Suspect]
     Active Substance: ZANUBRUTINIB
     Dosage: 80 MG NUMBER OF CAPSULES: 4
     Route: 065
     Dates: start: 20171212, end: 20180206
  11. PERINDOPRIL [Concomitant]
     Active Substance: PERINDOPRIL
     Route: 048
     Dates: start: 20170314
  12. STEMETIL [Concomitant]
     Active Substance: PROCHLORPERAZINE MALEATE
     Route: 048
     Dates: start: 2011
  13. ESCITALOPRAM [Concomitant]
     Active Substance: ESCITALOPRAM OXALATE
     Route: 048
     Dates: start: 20170501
  14. BGB-3111 (BTK INHIBITOR) [Suspect]
     Active Substance: ZANUBRUTINIB
     Dosage: 80 MG NUMBER OF CAPSULES: 4
     Route: 065
     Dates: start: 20170309, end: 20170405
  15. BGB-3111 (BTK INHIBITOR) [Suspect]
     Active Substance: ZANUBRUTINIB
     Dosage: 80 MG NUMBER OF CAPSULES: 4
     Route: 065
     Dates: start: 20170504, end: 20170531
  16. BGB-3111 (BTK INHIBITOR) [Suspect]
     Active Substance: ZANUBRUTINIB
     Dosage: 80 MG NUMBER OF CAPSULES: 4
     Route: 065
     Dates: start: 20170601, end: 20170628
  17. BGB-3111 (BTK INHIBITOR) [Suspect]
     Active Substance: ZANUBRUTINIB
     Dosage: 80 MG NUMBER OF CAPSULES: 4
     Route: 065
     Dates: start: 20170830, end: 20170918
  18. METFORMIN [Concomitant]
     Active Substance: METFORMIN HYDROCHLORIDE
     Route: 048
     Dates: start: 2011
  19. OBINUTUZUMAB. [Suspect]
     Active Substance: OBINUTUZUMAB
     Indication: B-CELL LYMPHOMA
     Route: 042
     Dates: start: 20161020, end: 20161020
  20. OBINUTUZUMAB. [Suspect]
     Active Substance: OBINUTUZUMAB
     Route: 042
     Dates: start: 20170209, end: 20170209
  21. BGB-3111 (BTK INHIBITOR) [Suspect]
     Active Substance: ZANUBRUTINIB
     Dosage: 80 MG NUMBER OF CAPSULES: 4
     Route: 065
     Dates: start: 20170112, end: 20170208
  22. BGB-3111 (BTK INHIBITOR) [Suspect]
     Active Substance: ZANUBRUTINIB
     Dosage: 80 MG NUMBER OF CAPSULES: 4
     Route: 065
     Dates: start: 20170725, end: 20170821
  23. BGB-3111 (BTK INHIBITOR) [Suspect]
     Active Substance: ZANUBRUTINIB
     Dosage: 80 MG NUMBER OF CAPSULES: 4
     Route: 065
     Dates: start: 20180207, end: 20180402
  24. GLICLAZIDE [Concomitant]
     Active Substance: GLICLAZIDE
     Route: 048
     Dates: start: 201607
  25. PARACETAMOL [Concomitant]
     Active Substance: ACETAMINOPHEN
     Route: 048
     Dates: start: 2006
  26. ASPIRIN. [Concomitant]
     Active Substance: ASPIRIN
     Route: 048
     Dates: start: 20161021, end: 20161022
  27. ALEPAM [Concomitant]
     Active Substance: OXAZEPAM
     Route: 048
     Dates: start: 20170314, end: 20170328
  28. LERCANIDIPINE [Concomitant]
     Active Substance: LERCANIDIPINE
     Route: 065
     Dates: start: 20170329
  29. BGB-3111 (BTK INHIBITOR) [Suspect]
     Active Substance: ZANUBRUTINIB
     Dosage: 80 MG NUMBER OF CAPSULES: 4
     Route: 065
     Dates: start: 20170919, end: 20171016
  30. DEXAMETHASONE. [Concomitant]
     Active Substance: DEXAMETHASONE
     Route: 042
     Dates: start: 20161020, end: 20161022
  31. ZYRTEC [Concomitant]
     Active Substance: CETIRIZINE HYDROCHLORIDE
     Route: 048
     Dates: start: 20161020, end: 20170309
  32. CLOPIDOGREL [Concomitant]
     Active Substance: CLOPIDOGREL BISULFATE
     Route: 048
     Dates: start: 20170828
  33. OBINUTUZUMAB. [Suspect]
     Active Substance: OBINUTUZUMAB
     Route: 042
     Dates: start: 20161027, end: 20161027
  34. BGB-3111 (BTK INHIBITOR) [Suspect]
     Active Substance: ZANUBRUTINIB
     Dosage: 80 MG NUMBER OF CAPSULES: 4
     Route: 065
     Dates: start: 20161215, end: 20170111
  35. BGB-3111 (BTK INHIBITOR) [Suspect]
     Active Substance: ZANUBRUTINIB
     Dosage: 80 MG NUMBER OF CAPSULES: 4
     Route: 065
     Dates: start: 20170829, end: 20170829
  36. ATENOLOL. [Concomitant]
     Active Substance: ATENOLOL
     Route: 065
     Dates: start: 2011
  37. ESCITALOPRAM [Concomitant]
     Active Substance: ESCITALOPRAM OXALATE
     Route: 065
     Dates: start: 20170422, end: 20170430
  38. OBINUTUZUMAB. [Suspect]
     Active Substance: OBINUTUZUMAB
     Route: 042
     Dates: start: 20170112, end: 20170112
  39. BGB-3111 (BTK INHIBITOR) [Suspect]
     Active Substance: ZANUBRUTINIB
     Dosage: 80 MG NUMBER OF CAPSULES: 4
     Route: 065
     Dates: start: 20171017, end: 20171211
  40. PERINDOPRIL [Concomitant]
     Active Substance: PERINDOPRIL
     Route: 065
     Dates: start: 2011, end: 20170313
  41. OBINUTUZUMAB. [Suspect]
     Active Substance: OBINUTUZUMAB
     Route: 042
     Dates: start: 20161103, end: 20161103
  42. OBINUTUZUMAB. [Suspect]
     Active Substance: OBINUTUZUMAB
     Route: 042
     Dates: start: 20161117, end: 20161117
  43. OBINUTUZUMAB. [Suspect]
     Active Substance: OBINUTUZUMAB
     Route: 042
     Dates: start: 20161215, end: 20161215
  44. BGB-3111 (BTK INHIBITOR) [Suspect]
     Active Substance: ZANUBRUTINIB
     Indication: B-CELL LYMPHOMA
     Dosage: 80 MG NUMBER OF CAPSULES: 4)
     Route: 065
     Dates: start: 20161020, end: 20161116
  45. BGB-3111 (BTK INHIBITOR) [Suspect]
     Active Substance: ZANUBRUTINIB
     Dosage: 80 MG NUMBER OF CAPSULES: 4
     Route: 065
     Dates: start: 20170629, end: 20170717
  46. BGB-3111 (BTK INHIBITOR) [Suspect]
     Active Substance: ZANUBRUTINIB
     Dosage: 80 MG NUMBER OF CAPSULES: 4
     Route: 065
     Dates: start: 20180403, end: 20180529
  47. CHOLECALCIFEROL [Concomitant]
     Active Substance: CHOLECALCIFEROL
     Route: 048
     Dates: start: 2001
  48. PARACETAMOL [Concomitant]
     Active Substance: ACETAMINOPHEN
     Route: 048
     Dates: start: 20161020, end: 20170309
  49. ASPIRIN. [Concomitant]
     Active Substance: ASPIRIN
     Route: 048
     Dates: start: 2001, end: 20161019
  50. CLEXANE [Concomitant]
     Active Substance: ENOXAPARIN SODIUM
     Route: 058
     Dates: start: 20161022, end: 20161022
  51. AMLODIPINE [Concomitant]
     Active Substance: AMLODIPINE BESYLATE
     Route: 048
     Dates: start: 20170309

REACTIONS (1)
  - Urinary tract infection [Not Recovered/Not Resolved]

NARRATIVE: CASE EVENT DATE: 20180721
